FAERS Safety Report 12209333 (Version 1)
Quarter: 2016Q1

REPORT INFORMATION
  Report Type: Spontaneous
  Country: US (occurrence: US)
  Receive Date: 20160324
  Receipt Date: 20160324
  Transmission Date: 20160526
  Serious: Yes (Other)
  Sender: FDA-Public Use
  Company Number: ALCN2016US002214

PATIENT
  Age: 7 Year
  Sex: Female

DRUGS (2)
  1. MOXIFLOXACIN. [Suspect]
     Active Substance: MOXIFLOXACIN
     Indication: PRODUCT USE ISSUE
     Dosage: UNK GTT, BID
     Route: 047
  2. PREDNISOLONE ACETATE. [Suspect]
     Active Substance: PREDNISOLONE ACETATE
     Indication: POSTOPERATIVE CARE
     Dosage: UNK GTT, BID
     Route: 047

REACTIONS (5)
  - Condition aggravated [Recovering/Resolving]
  - Corneal neovascularisation [Recovering/Resolving]
  - Drug administered to patient of inappropriate age [Recovering/Resolving]
  - Glaucoma [Recovering/Resolving]
  - Off label use [Recovering/Resolving]
